FAERS Safety Report 4925978-9 (Version None)
Quarter: 2006Q1

REPORT INFORMATION
  Report Type: 
  Country: None (occurrence: None)
  Receive Date: 20060224
  Receipt Date: 20060224
  Transmission Date: 20060701
  Serious: Yes (Hospitalization)
  Sender: FDA-Public Use
  Company Number: None

PATIENT
  Age: 75 Year
  Sex: Male
  Weight: 74.8435 kg

DRUGS (1)
  1. PRIMAXIN [Suspect]
     Indication: PNEUMONIA
     Dosage: 1 GM IV EVERY 8 HRS
     Route: 042
     Dates: start: 20060215, end: 20060221

REACTIONS (1)
  - CONVULSION [None]
